FAERS Safety Report 4354418-6 (Version None)
Quarter: 2004Q2

REPORT INFORMATION
  Report Type: 
  Country: None (occurrence: None)
  Receive Date: 20040503
  Receipt Date: 20040413
  Transmission Date: 20050107
  Serious: Yes (Hospitalization)
  Sender: FDA-Public Use
  Company Number: 2004AC00073

PATIENT
  Age: 22 Year
  Sex: Female

DRUGS (3)
  1. SEROQUEL [Suspect]
     Dosage: 300 MG BID PO
     Route: 048
     Dates: start: 20030613, end: 20030615
  2. NEFAZODONE HCL [Suspect]
     Dosage: 200 MG BID PO
     Route: 048
  3. LAMOTRIGINE [Concomitant]

REACTIONS (4)
  - DRUG INTERACTION [None]
  - GRAND MAL CONVULSION [None]
  - MEDICATION ERROR [None]
  - OVERDOSE [None]
